FAERS Safety Report 18649001 (Version 1)
Quarter: 2020Q4

REPORT INFORMATION
  Report Type: Report from Study
  Country: US (occurrence: US)
  Receive Date: 20201222
  Receipt Date: 20201222
  Transmission Date: 20210114
  Serious: Yes (Hospitalization)
  Sender: FDA-Public Use
  Company Number: US-PFIZER INC-2020502919

PATIENT

DRUGS (1)
  1. HEPARIN SODIUM. [Suspect]
     Active Substance: HEPARIN SODIUM
     Indication: PLATELET AGGREGATION INCREASED
     Dosage: UNK (INTRAOPERATIVE)

REACTIONS (3)
  - Heparin-induced thrombocytopenia [Unknown]
  - Arterial thrombosis [Unknown]
  - Thrombophlebitis superficial [Unknown]
